FAERS Safety Report 9840007 (Version 1)
Quarter: 2014Q1

REPORT INFORMATION
  Report Type: Spontaneous
  Country: US (occurrence: None)
  Receive Date: 20140117
  Receipt Date: 20140117
  Transmission Date: 20141002
  Serious: Yes (Life-Threatening, Hospitalization)
  Sender: FDA-Public Use
  Company Number: None

PATIENT
  Sex: Male
  Weight: 101.1 kg

DRUGS (2)
  1. RIVAROXABAN [Suspect]
     Indication: THROMBOSIS PROPHYLAXIS
     Dosage: EVERY EVENING, BY MOUTH
  2. RIVAROXABAN [Suspect]
     Indication: ATRIAL FIBRILLATION
     Dosage: EVERY EVENING, BY MOUTH

REACTIONS (10)
  - Dyspnoea [None]
  - Pneumonia [None]
  - Haematochezia [None]
  - International normalised ratio increased [None]
  - Deep vein thrombosis [None]
  - Ecchymosis [None]
  - Retroperitoneal haemorrhage [None]
  - Haemoptysis [None]
  - Hypotension [None]
  - Shock haemorrhagic [None]
